FAERS Safety Report 8432759-0 (Version None)
Quarter: 2012Q2

REPORT INFORMATION
  Report Type: 
  Country: None (occurrence: None)
  Receive Date: 20120323
  Receipt Date: 20110818
  Transmission Date: 20120825
  Serious: Yes (Hospitalization)
  Sender: FDA-Public Use
  Company Number: 163-21880-11071530

PATIENT
  Age: 86 Year
  Sex: Male

DRUGS (28)
  1. LASIX [Concomitant]
  2. OS-CAL +D (CALCIUM CARBONATE) [Concomitant]
  3. AMBIEN (ZLPIDEM TARTRATE) [Concomitant]
  4. ACETAMINOPHEN [Concomitant]
  5. ALUMINUM HYDROXIDE AND MAGNESIUM TRISILICATE [Concomitant]
  6. PACKED RED BLOOD CELLS (RED BLOOD CELLS, CONCENTRATED) [Concomitant]
  7. KLOR-CON [Concomitant]
  8. CENTRUM SILVER (CENTRUM SILVER) [Concomitant]
  9. LIDODERM [Concomitant]
  10. ZYLOPRIM [Concomitant]
  11. LEXAPRO [Concomitant]
  12. LOVENOX [Concomitant]
  13. ATIVAN [Concomitant]
  14. NITROSTAT [Concomitant]
  15. PRILOSEC [Concomitant]
  16. NEURONTIN [Concomitant]
  17. ZYPREXA [Concomitant]
  18. DECADRON [Concomitant]
  19. MORPHINE [Concomitant]
  20. COUMADIN [Concomitant]
  21. MAG-OX (MAGNESIUM OXIDE) [Concomitant]
  22. NORCO [Concomitant]
  23. RENVELA [Concomitant]
  24. REVLIMID [Suspect]
     Indication: MULTIPLE MYELOMA
     Dosage: 10 MG, 1 IN 1 D, PO ; 15 MG, 1 IN 1 D, PO ; 25 MG, 1 IN 1 D, PO
     Route: 048
     Dates: start: 20081201
  25. REVLIMID [Suspect]
     Indication: MULTIPLE MYELOMA
     Dosage: 10 MG, 1 IN 1 D, PO ; 15 MG, 1 IN 1 D, PO ; 25 MG, 1 IN 1 D, PO
     Route: 048
     Dates: start: 20081101, end: 20080101
  26. REVLIMID [Suspect]
     Indication: MULTIPLE MYELOMA
     Dosage: 10 MG, 1 IN 1 D, PO ; 15 MG, 1 IN 1 D, PO ; 25 MG, 1 IN 1 D, PO
     Route: 048
     Dates: start: 20100101, end: 20110714
  27. MILK OF MAGNESIA TAB [Concomitant]
  28. TRI-FLOR (ALL OTHER THERAPEUTIC PRODUCTS) [Concomitant]

REACTIONS (1)
  - PNEUMONIA [None]
